FAERS Safety Report 7248003-6 (Version None)
Quarter: 2011Q1

REPORT INFORMATION
  Report Type: 
  Country: None (occurrence: None)
  Receive Date: 20110127
  Receipt Date: 20110113
  Transmission Date: 20110831
  Serious: Yes (Hospitalization)
  Sender: FDA-Public Use
  Company Number: JP-CTI_01297_2011

PATIENT
  Age: 4 Year
  Sex: Male

DRUGS (2)
  1. MEIACT MS FINE GRANULES (CEFDITOREN PIVOXIL) [Suspect]
     Indication: NASOPHARYNGITIS
     Route: 048
     Dates: start: 20101231, end: 20110101
  2. ANTIBIOTICS-RESISTANT LACTIC ACID BACTERIAE [Concomitant]
     Indication: PRODUCT USED FOR UNKNOWN INDICATION

REACTIONS (8)
  - TONSILLITIS [None]
  - PRURITUS [None]
  - TOXIC SKIN ERUPTION [None]
  - HEPATITIS [None]
  - FACE OEDEMA [None]
  - ALPHA HAEMOLYTIC STREPTOCOCCAL INFECTION [None]
  - RASH [None]
  - PYREXIA [None]
